FAERS Safety Report 7755737-3 (Version None)
Quarter: 2011Q3

REPORT INFORMATION
  Report Type: 
  Country: None (occurrence: None)
  Receive Date: 20110916
  Receipt Date: 20110909
  Transmission Date: 20111222
  Serious: Yes (Other)
  Sender: FDA-Public Use
  Company Number: PHHY2011US57772

PATIENT
  Sex: Male

DRUGS (7)
  1. ASACOL [Concomitant]
     Dosage: 800 MG, UNK
  2. MARIJUANA [Concomitant]
     Dosage: UNK UKN, UNK
  3. ACIDTAL [Concomitant]
  4. GILENYA [Suspect]
     Indication: MULTIPLE SCLEROSIS
     Dosage: 0.5 MG, QD
     Route: 048
     Dates: start: 20110501
  5. FAMPRIDINE [Suspect]
     Indication: GAIT DISTURBANCE
     Dosage: 10 MG, BID
     Route: 048
     Dates: start: 20110501
  6. WIHITE PILL [Concomitant]
  7. MULTIVITAMIN [Concomitant]
     Dosage: UNK UKN, UNK

REACTIONS (9)
  - PRURITUS [None]
  - CONSTIPATION [None]
  - DYSPEPSIA [None]
  - DRUG INEFFECTIVE [None]
  - MONOPLEGIA [None]
  - ASTHENIA [None]
  - GAIT DISTURBANCE [None]
  - DIZZINESS [None]
  - BALANCE DISORDER [None]
